FAERS Safety Report 18712985 (Version 1)
Quarter: 2021Q1

REPORT INFORMATION
  Report Type: Report from Study
  Country: None (occurrence: US)
  Receive Date: 20210107
  Receipt Date: 20210107
  Transmission Date: 20210419
  Serious: Yes (Other)
  Sender: FDA-Public Use
  Company Number: US-ABBVIE-21K-163-3717575-00

PATIENT
  Age: 81 Year
  Sex: Female

DRUGS (1)
  1. VENCLEXTA [Suspect]
     Active Substance: VENETOCLAX
     Indication: CHRONIC MYELOMONOCYTIC LEUKAEMIA
     Route: 048
     Dates: start: 20210101

REACTIONS (8)
  - White blood cell count abnormal [Unknown]
  - Weight decreased [Unknown]
  - Nasal dryness [Unknown]
  - Hypotension [Unknown]
  - Anaemia [Unknown]
  - Haemoglobin abnormal [Unknown]
  - Spleen disorder [Unknown]
  - Off label use [Unknown]

NARRATIVE: CASE EVENT DATE: 202101
